FAERS Safety Report 11685509 (Version 1)
Quarter: 2015Q4

REPORT INFORMATION
  Report Type: Report from Study
  Country: BR (occurrence: BR)
  Receive Date: 20151030
  Receipt Date: 20151030
  Transmission Date: 20160304
  Serious: Yes (Other)
  Sender: FDA-Public Use
  Company Number: PHHY2015BR035811

PATIENT
  Sex: Female
  Weight: 66 kg

DRUGS (1)
  1. GILENYA [Suspect]
     Active Substance: FINGOLIMOD HYDROCHLORIDE
     Indication: MULTIPLE SCLEROSIS
     Dosage: 0.5 MG,(28 CS) QD
     Route: 065
     Dates: start: 2014, end: 201508

REACTIONS (8)
  - Neuromyelitis optica [Unknown]
  - Menstruation irregular [Unknown]
  - Malaise [Recovering/Resolving]
  - Drug ineffective [Unknown]
  - Muscular weakness [Unknown]
  - Asthenia [Unknown]
  - Spinal pain [Not Recovered/Not Resolved]
  - Gait disturbance [Unknown]
